FAERS Safety Report 5585648-3 (Version None)
Quarter: 2008Q1

REPORT INFORMATION
  Report Type: 
  Country: None (occurrence: None)
  Receive Date: 20080109
  Receipt Date: 20071228
  Transmission Date: 20080703
  Serious: Yes (Hospitalization)
  Sender: FDA-Public Use
  Company Number: FR-AVENTIS-200714178FR

PATIENT
  Age: 49 Year
  Sex: Male
  Weight: 74 kg

DRUGS (3)
  1. FLAGYL [Suspect]
     Route: 042
     Dates: start: 20071104, end: 20071109
  2. ZOCOR [Suspect]
     Route: 048
     Dates: start: 20071020, end: 20071109
  3. OFLOCET                            /00731801/ [Concomitant]
     Route: 048
     Dates: start: 20071023

REACTIONS (2)
  - GUILLAIN-BARRE SYNDROME [None]
  - POLYNEUROPATHY [None]
